FAERS Safety Report 8958529 (Version 1)
Quarter: 2012Q4

REPORT INFORMATION
  Report Type: Spontaneous
  Country: US (occurrence: None)
  Receive Date: 20121205
  Receipt Date: 20121205
  Transmission Date: 20130627
  Serious: Yes (Life-Threatening, Hospitalization, Disabling)
  Sender: FDA-Public Use
  Company Number: None

PATIENT
  Sex: Female
  Weight: 54.43 kg

DRUGS (2)
  1. RISPERDAL CONSTA [Suspect]
     Indication: SCHIZOPHRENIA
     Dosage: 25 mg. 2x a month
     Dates: start: 200810, end: 201212
  2. RISPERDAL CONSTA [Suspect]
     Indication: SCHIZOPHRENIA
     Dates: start: 200511

REACTIONS (13)
  - Pain [None]
  - Asthenia [None]
  - Anxiety [None]
  - Dyspnoea [None]
  - Abdominal pain [None]
  - Clavicle fracture [None]
  - Restlessness [None]
  - Fatigue [None]
  - Sleep disorder [None]
  - Memory impairment [None]
  - Convulsion [None]
  - Palpitations [None]
  - Mental disorder [None]
